FAERS Safety Report 14159496 (Version 3)
Quarter: 2018Q1

REPORT INFORMATION
  Report Type: Spontaneous
  Country: US (occurrence: US)
  Receive Date: 20171103
  Receipt Date: 20180118
  Transmission Date: 20180508
  Serious: No
  Sender: FDA-Public Use
  Company Number: PHHY2017US162972

PATIENT
  Sex: Female

DRUGS (1)
  1. GENTEAL MILD [Suspect]
     Active Substance: HYPROMELLOSE 2910 (4000 MPA.S)
     Indication: PRODUCT USED FOR UNKNOWN INDICATION
     Dosage: UNK
     Route: 047
     Dates: start: 201706, end: 20171031

REACTIONS (2)
  - Erythema of eyelid [Recovered/Resolved]
  - Eyelid irritation [Recovered/Resolved]

NARRATIVE: CASE EVENT DATE: 201706
